FAERS Safety Report 4486400-2 (Version None)
Quarter: 2004Q4

REPORT INFORMATION
  Report Type: 
  Country: None (occurrence: None)
  Receive Date: 20041026
  Receipt Date: 20041026
  Transmission Date: 20050328
  Serious: No
  Sender: FDA-Public Use
  Company Number: None

PATIENT
  Age: 8 Year
  Sex: Male

DRUGS (2)
  1. CEFTRIAXONE SODIUM [Suspect]
     Indication: LYME DISEASE
     Dosage: 2 GM IV QD
     Route: 042
     Dates: start: 20041015, end: 20041021
  2. CEFTRIAXONE SODIUM [Suspect]
     Indication: MENINGITIS
     Dosage: 2 GM IV QD
     Route: 042
     Dates: start: 20041015, end: 20041021

REACTIONS (1)
  - RASH [None]
